FAERS Safety Report 25050939 (Version 1)
Quarter: 2025Q1

REPORT INFORMATION
  Report Type: Report from Study
  Country: US (occurrence: US)
  Receive Date: 20250307
  Receipt Date: 20250307
  Transmission Date: 20250408
  Serious: Yes (Other)
  Sender: EMD SERONO INC
  Company Number: US-Merck Healthcare KGaA-2023489311

PATIENT
  Age: 37 Year
  Sex: Female

DRUGS (1)
  1. MAVENCLAD [Suspect]
     Active Substance: CLADRIBINE
     Indication: Multiple sclerosis
     Dates: start: 20231023, end: 20231027

REACTIONS (3)
  - Abortion spontaneous [Unknown]
  - Pelvic pain [Unknown]
  - Maternal exposure timing unspecified [Recovered/Resolved]

NARRATIVE: CASE EVENT DATE: 20231118
